FAERS Safety Report 20345985 (Version 9)
Quarter: 2025Q2

REPORT INFORMATION
  Report Type: Spontaneous
  Country: US (occurrence: US)
  Receive Date: 20220118
  Receipt Date: 20250422
  Transmission Date: 20250717
  Serious: Yes (Hospitalization, Other)
  Sender: PFIZER
  Company Number: US-PFIZER INC-202200028926

PATIENT
  Age: 64 Year
  Sex: Female
  Weight: 68.04 kg

DRUGS (4)
  1. XELJANZ XR [Suspect]
     Active Substance: TOFACITINIB CITRATE
     Indication: Rheumatoid arthritis
     Dosage: 11 MG, 1X/DAY
     Route: 048
     Dates: start: 202101
  2. XELJANZ XR [Suspect]
     Active Substance: TOFACITINIB CITRATE
     Dates: end: 202501
  3. XELJANZ XR [Suspect]
     Active Substance: TOFACITINIB CITRATE
  4. ERGOCALCIFEROL [Concomitant]
     Active Substance: ERGOCALCIFEROL
     Indication: Bone disorder

REACTIONS (8)
  - Intervertebral disc degeneration [Recovered/Resolved with Sequelae]
  - Arthropathy [Not Recovered/Not Resolved]
  - Cataract [Unknown]
  - Fall [Unknown]
  - Knee arthroplasty [Unknown]
  - Endodontic procedure [Unknown]
  - Body height decreased [Unknown]
  - Post procedural complication [Unknown]

NARRATIVE: CASE EVENT DATE: 20210322
